FAERS Safety Report 7025178-5 (Version None)
Quarter: 2010Q4

REPORT INFORMATION
  Report Type: 
  Country: None (occurrence: None)
  Receive Date: 20101001
  Receipt Date: 20091120
  Transmission Date: 20110411
  Serious: Yes (Other)
  Sender: FDA-Public Use
  Company Number: NL-ROCHE-727584

PATIENT
  Sex: Female

DRUGS (2)
  1. AVASTIN [Suspect]
     Route: 042
  2. PACLITAXEL [Suspect]
     Route: 042

REACTIONS (2)
  - BREAST CANCER [None]
  - MALIGNANT NEOPLASM PROGRESSION [None]
